FAERS Safety Report 7394849-3 (Version None)
Quarter: 2011Q2

REPORT INFORMATION
  Report Type: 
  Country: None (occurrence: None)
  Receive Date: 20110405
  Receipt Date: 20110103
  Transmission Date: 20111010
  Serious: Yes (Congenital Anomaly)
  Sender: FDA-Public Use
  Company Number: A0906179A

PATIENT
  Sex: Male
  Weight: 2.4 kg

DRUGS (1)
  1. PAXIL CR [Suspect]
     Indication: ANXIETY
     Route: 064

REACTIONS (4)
  - VENTRICULAR SEPTAL DEFECT [None]
  - DRUG EXPOSURE DURING PREGNANCY [None]
  - ATRIAL SEPTAL DEFECT [None]
  - PYLORIC STENOSIS [None]
